FAERS Safety Report 15941237 (Version 2)
Quarter: 2019Q1

REPORT INFORMATION
  Report Type: Report from Study
  Country: US (occurrence: US)
  Receive Date: 20190208
  Receipt Date: 20190308
  Transmission Date: 20190417
  Serious: Yes (Hospitalization, Other)
  Sender: FDA-Public Use
  Company Number: US-TAKEDA-2018TUS024994

PATIENT
  Sex: Female

DRUGS (2)
  1. PONATINIB [Suspect]
     Active Substance: PONATINIB
     Indication: MYELOID LEUKAEMIA
     Dosage: 30 MILLIGRAM, QD
     Route: 048
     Dates: start: 201601
  2. IBUPROFEN                          /00109205/ [Suspect]
     Active Substance: IBUPROFEN
     Indication: HEADACHE
     Dosage: UNK
     Route: 065

REACTIONS (16)
  - Fluid retention [Unknown]
  - Hypoaesthesia [Unknown]
  - Nausea [Recovering/Resolving]
  - Intracranial aneurysm [Unknown]
  - Influenza [Not Recovered/Not Resolved]
  - Pyrexia [Not Recovered/Not Resolved]
  - Rash [Not Recovered/Not Resolved]
  - Hypertension [Unknown]
  - Musculoskeletal pain [Unknown]
  - Pain [Unknown]
  - Headache [Unknown]
  - Gastric disorder [Unknown]
  - Haematemesis [Unknown]
  - Nasopharyngitis [Not Recovered/Not Resolved]
  - Arrhythmia [Unknown]
  - Vomiting [Recovering/Resolving]
